FAERS Safety Report 6720312-6 (Version None)
Quarter: 2010Q2

REPORT INFORMATION
  Report Type: 
  Country: None (occurrence: None)
  Receive Date: 20100507
  Receipt Date: 20100422
  Transmission Date: 20101027
  Serious: Yes (Life-Threatening, Hospitalization, Other)
  Sender: FDA-Public Use
  Company Number: 2010SCPR000582

PATIENT
  Age: 22 Year
  Sex: Female
  Weight: 57 kg

DRUGS (7)
  1. IBUPROFEN [Suspect]
     Indication: PAIN
     Dosage: 400 MG, QD, ORAL
     Route: 048
     Dates: start: 20090121, end: 20090130
  2. PANTOZOL /01263202/ (PANTOPRAZOLE SODIUM) TABLET [Suspect]
     Indication: PROPHYLAXIS AGAINST GASTROINTESTINAL ULCER
     Dosage: 40 MG, QD, ORAL
     Route: 048
     Dates: start: 20090121, end: 20090210
  3. VOLTAREN [Suspect]
     Indication: PAIN
     Dosage: 50 MG, BID, RECTAL
     Route: 054
     Dates: start: 20090130, end: 20090210
  4. OXYGESIC (OXYCODONE HYDROCHLORIDE) SLOW RELEASE TABLET [Suspect]
     Indication: PAIN
     Dosage: 10 MG, TID, ORAL
     Route: 048
     Dates: start: 20090130, end: 20090210
  5. CLEXANE (ENOXAPARIN SODIUM) INJECTION [Suspect]
     Indication: THROMBOSIS PROPHYLAXIS
     Dosage: 0.4 MG, QD, SUBCUTANEOUS
     Route: 058
     Dates: start: 20100121
  6. BERLOSIN (METAMIZOLE SODIUM) UNKNOWN [Suspect]
     Indication: PAIN
     Dosage: 500 MG, ORAL
     Route: 048
     Dates: start: 20090121, end: 20090130
  7. SEX HORMONES AND MODULATORS OF THE GENI. SYS. (CONTRACEPTIVE NOS) [Concomitant]

REACTIONS (10)
  - ASCITES [None]
  - CHILLS [None]
  - CHROMATURIA [None]
  - HEADACHE [None]
  - HEPATIC FAILURE [None]
  - HEPATIC LESION [None]
  - HEPATITIS FULMINANT [None]
  - HEPATOSPLENOMEGALY [None]
  - LIVER DISORDER [None]
  - VOMITING [None]
